FAERS Safety Report 18102144 (Version 1)
Quarter: 2020Q3

REPORT INFORMATION
  Report Type: Spontaneous
  Country: IN (occurrence: IN)
  Receive Date: 20200803
  Receipt Date: 20200803
  Transmission Date: 20201103
  Serious: Yes (Hospitalization, Other)
  Sender: FDA-Public Use
  Company Number: IN-CIPLA LTD.-2020IN05164

PATIENT

DRUGS (2)
  1. LOPINAVIR/RITONAVIR [Suspect]
     Active Substance: LOPINAVIR\RITONAVIR
     Indication: COVID-19
     Dosage: UNK
     Route: 065
     Dates: start: 202003
  2. OSELTAMIVIR [Suspect]
     Active Substance: OSELTAMIVIR
     Indication: COVID-19
     Dosage: UNK
     Route: 065
     Dates: start: 202003

REACTIONS (7)
  - Product use in unapproved indication [Unknown]
  - Electrocardiogram ST segment elevation [Unknown]
  - Chest pain [Unknown]
  - Blood pressure decreased [Unknown]
  - Diarrhoea [Unknown]
  - Off label use [Unknown]
  - Electrocardiogram T wave amplitude increased [Unknown]

NARRATIVE: CASE EVENT DATE: 202003
